FAERS Safety Report 6305685-0 (Version None)
Quarter: 2009Q3

REPORT INFORMATION
  Report Type: 
  Country: None (occurrence: None)
  Receive Date: 20090807
  Receipt Date: 20090727
  Transmission Date: 20100115
  Serious: Yes (Death, Other)
  Sender: FDA-Public Use
  Company Number: MC200900261

PATIENT
  Age: 56 Year
  Sex: Female

DRUGS (5)
  1. ANGIOMAX [Suspect]
     Indication: STENT PLACEMENT
     Dosage: 12.5 ML, BOLUS, INTRAVENOUS  5MG/ML, IV
     Route: 042
     Dates: start: 20090616, end: 20090616
  2. ANGIOMAX [Suspect]
     Indication: STENT PLACEMENT
     Dosage: 12.5 ML, BOLUS, INTRAVENOUS  5MG/ML, IV
     Route: 042
     Dates: start: 20090616, end: 20090619
  3. INTEGRILIN [Suspect]
     Indication: CORONARY ARTERY DISEASE
     Dosage: 5.1 ML, HR, INTRAVENOUS
     Route: 042
     Dates: start: 20090615, end: 20090616
  4. HEPARIN [Suspect]
     Indication: DRUG USE FOR UNKNOWN INDICATION
     Dates: end: 20090619
  5. PLAVIX [Suspect]
     Indication: STENT PLACEMENT
     Dosage: 300 MG, UNK, ORAL
     Route: 048
     Dates: start: 20090616, end: 20090619

REACTIONS (7)
  - CARDIO-RESPIRATORY ARREST [None]
  - CONVULSION [None]
  - GENERAL PHYSICAL HEALTH DETERIORATION [None]
  - HAEMODYNAMIC INSTABILITY [None]
  - HAEMOTHORAX [None]
  - RETROPERITONEAL HAEMORRHAGE [None]
  - UNRESPONSIVE TO STIMULI [None]
